FAERS Safety Report 10075470 (Version 1)
Quarter: 2014Q2

REPORT INFORMATION
  Report Type: Spontaneous
  Country: US (occurrence: None)
  Receive Date: 20140411
  Receipt Date: 20140411
  Transmission Date: 20141212
  Serious: Yes (Hospitalization)
  Sender: FDA-Public Use
  Company Number: None

PATIENT
  Age: 76 Year
  Sex: Male
  Weight: 73.94 kg

DRUGS (14)
  1. IBRUTINIB [Suspect]
     Indication: CHRONIC LYMPHOCYTIC LEUKAEMIA
     Route: 048
     Dates: start: 20121016
  2. SULFAMATHOXAXZOLE-TRIMETHOPRIM (BACTRIM DS) [Concomitant]
  3. ALLOPURINOL [Concomitant]
  4. VALACYCLOVIR [Concomitant]
  5. ATORVASTATIN [Concomitant]
  6. RISEDRONATE (ACTONEL) [Concomitant]
  7. FENTANYL [Concomitant]
  8. PROMETHAZINE HCL [Concomitant]
  9. AMINOCAPROIC ACID [Concomitant]
  10. HYDROMORPHONE [Concomitant]
  11. DOCUSATE [Concomitant]
  12. SENNA [Concomitant]
  13. PRENAT-FECBN-FEBISG-FA-OMEGA (MULTIVITAMIN/MINERALS) [Concomitant]
  14. CALCIUM CARBONATE-BITAMIN D (CALCIUM 600 + D) [Concomitant]

REACTIONS (15)
  - Nausea [None]
  - Vomiting [None]
  - Fatigue [None]
  - Dyspnoea exertional [None]
  - Back pain [None]
  - Constipation [None]
  - Dizziness [None]
  - Haemoglobin decreased [None]
  - Epigastric discomfort [None]
  - Platelet count decreased [None]
  - Gastrointestinal haemorrhage [None]
  - Epistaxis [None]
  - Melaena [None]
  - Weight decreased [None]
  - Oesophagitis [None]
